FAERS Safety Report 5765579-6 (Version None)
Quarter: 2008Q2

REPORT INFORMATION
  Report Type: 
  Country: None (occurrence: None)
  Receive Date: 20080605
  Receipt Date: 20080523
  Transmission Date: 20081010
  Serious: Yes (Congenital Anomaly)
  Sender: FDA-Public Use
  Company Number: 2008014061

PATIENT
  Sex: 0

DRUGS (1)
  1. CETIRIZINE HCL [Suspect]
     Dosage: PLACENTAL

REACTIONS (2)
  - CONGENITAL HAND MALFORMATION [None]
  - MATERNAL DRUGS AFFECTING FOETUS [None]
